FAERS Safety Report 8068957-8 (Version None)
Quarter: 2012Q1

REPORT INFORMATION
  Report Type: 
  Country: None (occurrence: None)
  Receive Date: 20120118
  Receipt Date: 20120112
  Transmission Date: 20120608
  Serious: Yes (Death)
  Sender: FDA-Public Use
  Company Number: 216466

PATIENT
  Age: 75 Year
  Sex: Female

DRUGS (2)
  1. INNOHEP [Suspect]
     Indication: ANTICOAGULANT THERAPY
     Dosage: 1.4 ML (0.7 LM,2 IN 1 D),SUBCUTANEOUS
     Route: 058
     Dates: start: 20110419
  2. INNOHEP [Suspect]
     Indication: SURGERY
     Dosage: 1.4 ML (0.7 LM,2 IN 1 D),SUBCUTANEOUS
     Route: 058
     Dates: start: 20110419

REACTIONS (4)
  - SHOCK HAEMORRHAGIC [None]
  - INTRA-ABDOMINAL HAEMORRHAGE [None]
  - ACUTE RESPIRATORY DISTRESS SYNDROME [None]
  - ACCIDENTAL OVERDOSE [None]
